FAERS Safety Report 25867662 (Version 1)
Quarter: 2025Q4

REPORT INFORMATION
  Report Type: Spontaneous
  Country: EU (occurrence: EU)
  Receive Date: 20251001
  Receipt Date: 20251001
  Transmission Date: 20260118
  Serious: Yes (Life-Threatening, Hospitalization, Other)
  Sender: MERCK SHARP & DOHME LLC
  Company Number: EU-DCGMA-25205794

PATIENT
  Age: 72 Year
  Sex: Male
  Weight: 83 kg

DRUGS (1)
  1. KEYTRUDA [Suspect]
     Active Substance: PEMBROLIZUMAB
     Indication: Neoplasm malignant
     Route: 042
     Dates: start: 20250606, end: 20250718

REACTIONS (2)
  - Hypertensive emergency [Unknown]
  - Encephalitis autoimmune [Unknown]

NARRATIVE: CASE EVENT DATE: 20250719
